FAERS Safety Report 12864365 (Version 1)
Quarter: 2016Q4

REPORT INFORMATION
  Report Type: Spontaneous
  Country: US (occurrence: US)
  Receive Date: 20161020
  Receipt Date: 20161020
  Transmission Date: 20170207
  Serious: No
  Sender: FDA-Public Use
  Company Number: US-TEVA-675114USA

PATIENT
  Sex: Male

DRUGS (1)
  1. PHENTERMINE. [Suspect]
     Active Substance: PHENTERMINE
     Route: 065

REACTIONS (2)
  - Product substitution issue [Unknown]
  - Drug effect decreased [Unknown]
